FAERS Safety Report 17057199 (Version 1)
Quarter: 2019Q4

REPORT INFORMATION
  Report Type: Spontaneous
  Country: FR (occurrence: FR)
  Receive Date: 20191121
  Receipt Date: 20191121
  Transmission Date: 20200122
  Serious: Yes (Hospitalization)
  Sender: FDA-Public Use
  Company Number: FR-ACCORD-161386

PATIENT
  Age: 60 Year
  Sex: Male
  Weight: 80 kg

DRUGS (5)
  1. ONDANSETRON ACCORD [Concomitant]
     Active Substance: ONDANSETRON
     Indication: PREMEDICATION
     Route: 042
     Dates: start: 20190730, end: 20190730
  2. METHYLPREDNISOLONE MYLAN [Concomitant]
     Active Substance: METHYLPREDNISOLONE
     Indication: PREMEDICATION
     Route: 042
     Dates: start: 20190730, end: 20190730
  3. TOMUDEX [Concomitant]
     Active Substance: RALTITREXED
     Indication: RECTAL CANCER
     Dosage: STRENGTH: 2 MG
     Route: 041
     Dates: start: 20190730, end: 20190730
  4. VECTIBIX [Suspect]
     Active Substance: PANITUMUMAB
     Indication: RECTAL CANCER
     Dosage: 20 MG / ML,
     Route: 041
     Dates: start: 20190730, end: 20190730
  5. OXALIPLATIN ACCORD [Suspect]
     Active Substance: OXALIPLATIN
     Indication: NEOPLASM MALIGNANT
     Route: 041
     Dates: start: 20190730, end: 20190730

REACTIONS (2)
  - Laryngospasm [Recovered/Resolved]
  - Muscle spasms [Recovered/Resolved]

NARRATIVE: CASE EVENT DATE: 20190730
